FAERS Safety Report 11258514 (Version 3)
Quarter: 2015Q3

REPORT INFORMATION
  Report Type: Spontaneous
  Country: JP (occurrence: None)
  Receive Date: 20150708
  Receipt Date: 20150901
  Transmission Date: 20151125
  Serious: Yes (Hospitalization)
  Sender: FDA-Public Use
  Company Number: 2015FE02188

PATIENT
  Age: 87 Year
  Sex: Male

DRUGS (2)
  1. GONAX (DEGARELIX) POWDER AND SOLVENT FOR SOLUTION FOR INJECTION [Suspect]
     Active Substance: DEGARELIX
     Indication: PROSTATE CANCER
     Dosage: 80MG, MONTHLY, SUBCUTANEOUS
     Route: 058
     Dates: start: 2008, end: 20150610
  2. BICALUTAMIDE. [Concomitant]
     Active Substance: BICALUTAMIDE

REACTIONS (6)
  - Wheezing [None]
  - Pyrexia [None]
  - Tachycardia [None]
  - Upper respiratory tract inflammation [None]
  - Dysuria [None]
  - Diarrhoea [None]

NARRATIVE: CASE EVENT DATE: 20140801
